FAERS Safety Report 25760269 (Version 1)
Quarter: 2025Q3

REPORT INFORMATION
  Report Type: Spontaneous
  Country: US (occurrence: US)
  Receive Date: 20250904
  Receipt Date: 20250904
  Transmission Date: 20251020
  Serious: No
  Sender: LFB GROUP
  Company Number: US-LFBP-2024000385

PATIENT
  Sex: Male

DRUGS (1)
  1. SEVENFACT [Suspect]
     Active Substance: COAGULATION FACTOR VIIA RECOMBINANT HUMAN-JNCW
     Indication: Haemorrhage
     Route: 065

REACTIONS (2)
  - Drug ineffective [Unknown]
  - No adverse event [Unknown]
